FAERS Safety Report 9350416 (Version 2)
Quarter: 2013Q3

REPORT INFORMATION
  Report Type: Spontaneous
  Country: US (occurrence: US)
  Receive Date: 20130617
  Receipt Date: 20130710
  Transmission Date: 20140515
  Serious: No
  Sender: FDA-Public Use
  Company Number: US-PFIZER INC-2013177639

PATIENT
  Sex: Female

DRUGS (2)
  1. ADVIL [Suspect]
     Indication: INFLAMMATION
     Dosage: UNK
     Route: 048
  2. ADVIL [Suspect]
     Indication: SCIATICA
     Dosage: 600 MG (3 X 200 MG) ONCE
     Route: 048
     Dates: start: 20130610

REACTIONS (4)
  - Extra dose administered [Unknown]
  - Drug prescribing error [Unknown]
  - Diarrhoea [Unknown]
  - Nausea [Unknown]
